FAERS Safety Report 7393865-5 (Version None)
Quarter: 2011Q2

REPORT INFORMATION
  Report Type: 
  Country: None (occurrence: None)
  Receive Date: 20110405
  Receipt Date: 20110327
  Transmission Date: 20111010
  Serious: Yes (Other)
  Sender: FDA-Public Use
  Company Number: GB-NOVOPROD-325711

PATIENT
  Sex: Male

DRUGS (2)
  1. LANTUS [Suspect]
     Indication: PRODUCT USED FOR UNKNOWN INDICATION
     Dosage: 24 IU, UNK
     Route: 058
  2. NOVORAPID [Suspect]
     Indication: PRODUCT USED FOR UNKNOWN INDICATION

REACTIONS (7)
  - NAUSEA [None]
  - HYPERHIDROSIS [None]
  - TREMOR [None]
  - CHEST PAIN [None]
  - DECREASED APPETITE [None]
  - LOWER RESPIRATORY TRACT INFECTION [None]
  - MALAISE [None]
